FAERS Safety Report 7052278-6 (Version None)
Quarter: 2010Q4

REPORT INFORMATION
  Report Type: 
  Country: None (occurrence: None)
  Receive Date: 20101018
  Receipt Date: 20101018
  Transmission Date: 20110411
  Serious: No
  Sender: FDA-Public Use
  Company Number: None

PATIENT
  Age: 51 Year
  Sex: Female
  Weight: 52.3 kg

DRUGS (1)
  1. KENALOG [Suspect]
     Indication: INFLAMMATION
     Dosage: 1 INJECTION HIP
     Dates: start: 20100301

REACTIONS (2)
  - INJECTION SITE DISCOLOURATION [None]
  - INJECTION SITE REACTION [None]
